FAERS Safety Report 7892984-4 (Version None)
Quarter: 2011Q4

REPORT INFORMATION
  Report Type: 
  Country: None (occurrence: None)
  Receive Date: 20111104
  Receipt Date: 20111026
  Transmission Date: 20120403
  Serious: Yes (Hospitalization, Other)
  Sender: FDA-Public Use
  Company Number: FR-VERTEX PHARMACEUTICALS INC.-AE-2011-000485

PATIENT
  Sex: Female
  Weight: 74 kg

DRUGS (5)
  1. PEGASYS [Concomitant]
     Indication: HEPATITIS C
     Route: 058
     Dates: start: 20110512
  2. COPEGUS [Concomitant]
     Indication: HEPATITIS C
     Route: 048
     Dates: start: 20110512
  3. COPEGUS [Concomitant]
     Route: 048
  4. PEGASYS [Concomitant]
     Route: 058
  5. VX-950 [Suspect]
     Indication: HEPATITIS C
     Route: 048
     Dates: start: 20110601

REACTIONS (3)
  - ANAEMIA [None]
  - PYELONEPHRITIS [None]
  - ASTHENIA [None]
